FAERS Safety Report 7069766-9 (Version None)
Quarter: 2010Q4

REPORT INFORMATION
  Report Type: 
  Country: None (occurrence: None)
  Receive Date: 20101028
  Receipt Date: 20100524
  Transmission Date: 20110411
  Serious: No
  Sender: FDA-Public Use
  Company Number: US-WYE-H15387210

PATIENT
  Age: 14 Year
  Sex: Male

DRUGS (1)
  1. ADVIL [Suspect]
     Dosage: A TABLET X 1
     Route: 048
     Dates: start: 20100522, end: 20100522

REACTIONS (4)
  - FOREIGN BODY [None]
  - INCREASED UPPER AIRWAY SECRETION [None]
  - OROPHARYNGEAL PAIN [None]
  - THROAT IRRITATION [None]
